FAERS Safety Report 4452498-0 (Version None)
Quarter: 2004Q3

REPORT INFORMATION
  Report Type: 
  Country: None (occurrence: None)
  Receive Date: 20040916
  Receipt Date: 20040903
  Transmission Date: 20050211
  Serious: Yes (Other)
  Sender: FDA-Public Use
  Company Number: 2004062828

PATIENT

DRUGS (1)
  1. EPANUTRIN INJECTABLE (PHENYTOIN SODIUM) [Suspect]
     Indication: STATUS EPILEPTICUS
     Dosage: INTRAVENOUS
     Route: 042

REACTIONS (2)
  - CONVULSION [None]
  - DISEASE RECURRENCE [None]
